FAERS Safety Report 18750177 (Version 1)
Quarter: 2021Q1

REPORT INFORMATION
  Report Type: Spontaneous
  Country: US (occurrence: US)
  Receive Date: 20210118
  Receipt Date: 20210118
  Transmission Date: 20210419
  Serious: No
  Sender: FDA-Public Use
  Company Number: NVSC2021US006165

PATIENT
  Sex: Male

DRUGS (1)
  1. GLEEVEC [Suspect]
     Active Substance: IMATINIB MESYLATE
     Indication: GASTROINTESTINAL STROMAL TUMOUR
     Dosage: GLEEVEC FOR ABOUT 7 MONTHS AT 800 MG FOR ABOUT 4 OF THOSE MONTHS
     Route: 065

REACTIONS (3)
  - Gait disturbance [Unknown]
  - Pain [Unknown]
  - Mobility decreased [Unknown]
